FAERS Safety Report 9859150 (Version 1)
Quarter: 2014Q1

REPORT INFORMATION
  Report Type: Report from Study
  Country: US (occurrence: US)
  Receive Date: 20140131
  Receipt Date: 20140131
  Transmission Date: 20141002
  Serious: Yes (Death, Hospitalization)
  Sender: FDA-Public Use
  Company Number: US-ACTELION-A-US2014-94107

PATIENT
  Age: 61 Year
  Sex: Female

DRUGS (10)
  1. TRACLEER [Suspect]
     Indication: PULMONARY ARTERIAL HYPERTENSION
     Dosage: 125 MG, BID
     Route: 048
     Dates: start: 20130508, end: 20131214
  2. ADCIRCA [Concomitant]
     Dosage: 40 MG, QD
  3. AMLODIPINE BESYLATE [Concomitant]
     Dosage: 10 MG, QD
  4. METOPROLOL SUCCINATE [Concomitant]
     Dosage: 100 MG, QD
  5. LOSARTAN POTASSIUM [Concomitant]
     Dosage: 100-25 MG
  6. ECOTRIN [Concomitant]
     Dosage: 81 MG, UNK
  7. FERROUS SULFATE [Concomitant]
     Dosage: UNK, QD
  8. FLOVENT HFA [Concomitant]
     Dosage: 1 PUFF, BID
  9. SYMBICORT [Concomitant]
     Dosage: 12 PUFF, (160-4.5 MCG/ACT)
  10. SPIRIVA [Concomitant]
     Dosage: 18 MCG, UNK

REACTIONS (8)
  - Death [Fatal]
  - Non-small cell lung cancer [Unknown]
  - Interstitial lung disease [Unknown]
  - Condition aggravated [Unknown]
  - Pneumonia [Unknown]
  - Dyspnoea exertional [Recovering/Resolving]
  - Fatigue [Unknown]
  - Cough [Unknown]
